FAERS Safety Report 15631529 (Version 1)
Quarter: 2018Q4

REPORT INFORMATION
  Report Type: Spontaneous
  Country: US (occurrence: US)
  Receive Date: 20181119
  Receipt Date: 20181119
  Transmission Date: 20190205
  Serious: Yes (Other)
  Sender: FDA-Public Use
  Company Number: PHEH2018US047962

PATIENT
  Age: 11 Year

DRUGS (1)
  1. KYMRIAH [Suspect]
     Active Substance: TISAGENLECLEUCEL
     Indication: LEUKAEMIA RECURRENT
     Dosage: 1 DF, ONCE/SINGLE
     Route: 042

REACTIONS (6)
  - Tachycardia [Unknown]
  - Renal failure [Recovered/Resolved]
  - Neurotoxicity [Unknown]
  - Cytokine release syndrome [Recovered/Resolved]
  - Therapy non-responder [Unknown]
  - Pyrexia [Unknown]
